FAERS Safety Report 8659715 (Version 2)
Quarter: 2012Q4

REPORT INFORMATION
  Report Type: 
  Country: FR (occurrence: FR)
  Receive Date: 20120711
  Receipt Date: 20120905
  Transmission Date: 20130627
  Serious: Yes (Hospitalization)
  Sender: FDA-Public Use
  Company Number: FR-PFIZER INC-2012161122

PATIENT
  Age: 53 Year
  Sex: Male

DRUGS (7)
  1. VANCOMYCIN HCL [Suspect]
     Indication: PNEUMONIA
     Dosage: 2 g, 1x/day
     Route: 042
     Dates: start: 20120525, end: 20120527
  2. AUGMENTIN [Suspect]
     Indication: PNEUMONIA
     Dosage: 2 g, 3x/day
     Route: 042
     Dates: start: 20120528, end: 20120608
  3. GENTAMICIN SULFATE [Suspect]
     Indication: PNEUMONIA
     Dosage: 400 mg, 1x/day
     Route: 042
     Dates: start: 20120525, end: 20120527
  4. ERYTHROMYCIN [Suspect]
     Indication: PNEUMONIA
     Dosage: 600 mg, 1x/day
     Route: 042
     Dates: start: 20120528, end: 20120530
  5. ATOVAQUONE [Suspect]
     Indication: PROPHYLAXIS
     Dosage: UNK
     Route: 065
     Dates: start: 201206, end: 20120621
  6. LITAK [Concomitant]
     Dosage: UNK
     Dates: start: 20120602
  7. HEPARIN [Concomitant]
     Indication: SPLENIC VEIN THROMBOSIS
     Dosage: UNK
     Dates: start: 20120601

REACTIONS (7)
  - Rash maculo-papular [Recovered/Resolved]
  - Purpura [Recovered/Resolved]
  - Rash pustular [Unknown]
  - Oedema peripheral [Unknown]
  - Inflammation [Unknown]
  - Pyrexia [Unknown]
  - Erythema [Unknown]
